FAERS Safety Report 8831984 (Version 3)
Quarter: 2016Q4

REPORT INFORMATION
  Report Type: Report from Study
  Country: US (occurrence: US)
  Receive Date: 20121009
  Receipt Date: 20161011
  Transmission Date: 20170207
  Serious: Yes (Hospitalization, Other)
  Sender: FDA-Public Use
  Company Number: US-ROCHE-CID000000002171742

PATIENT
  Age: 66 Year
  Sex: Male
  Weight: 142.5 kg

DRUGS (6)
  1. LENALIDOMIDE [Suspect]
     Active Substance: LENALIDOMIDE
     Route: 048
     Dates: start: 20120723
  2. DOCETAXEL. [Suspect]
     Active Substance: DOCETAXEL
     Indication: PROSTATE CANCER METASTATIC
     Dosage: LAST DOSE PROIR TO SAE:23/07/2012
     Route: 042
  3. LENALIDOMIDE [Suspect]
     Active Substance: LENALIDOMIDE
     Indication: PROSTATE CANCER METASTATIC
     Dosage: LAST DOSE PRIOR TO SAE:30/07/2012
     Route: 048
  4. BEVACIZUMAB [Suspect]
     Active Substance: BEVACIZUMAB
     Indication: PROSTATE CANCER METASTATIC
     Dosage: LAST DOSE PRIOR TO SAE:23/07/2012
     Route: 042
     Dates: start: 20120307
  5. BEVACIZUMAB [Suspect]
     Active Substance: BEVACIZUMAB
     Route: 042
     Dates: start: 20120723
  6. PREDNISONE. [Suspect]
     Active Substance: PREDNISONE
     Indication: PROSTATE CANCER METASTATIC
     Dosage: LAST DOSE PRIOR TO SAE:30/07/2012
     Route: 048
     Dates: start: 20120730

REACTIONS (6)
  - Atrial fibrillation [Recovered/Resolved]
  - Blood bilirubin increased [Recovered/Resolved]
  - Syncope [Recovered/Resolved]
  - Ventricular arrhythmia [Unknown]
  - Hypotension [Recovered/Resolved]
  - Blood bilirubin increased [Unknown]

NARRATIVE: CASE EVENT DATE: 20120731
